FAERS Safety Report 7191405-7 (Version None)
Quarter: 2010Q4

REPORT INFORMATION
  Report Type: 
  Country: None (occurrence: None)
  Receive Date: 20101221
  Receipt Date: 20101221
  Transmission Date: 20110411
  Serious: Yes (Other)
  Sender: FDA-Public Use
  Company Number: None

PATIENT
  Age: 80 Year
  Sex: Female
  Weight: 74.8435 kg

DRUGS (1)
  1. MULTAQ [Suspect]
     Indication: CARDIAC FAILURE
     Dosage: 400 MG 2 MOUTH
     Route: 048
     Dates: start: 20100825, end: 20101006

REACTIONS (3)
  - ABDOMINAL DISCOMFORT [None]
  - TINNITUS [None]
  - VISION BLURRED [None]
